FAERS Safety Report 7529555-5 (Version None)
Quarter: 2011Q2

REPORT INFORMATION
  Report Type: 
  Country: None (occurrence: None)
  Receive Date: 20110531
  Receipt Date: 20110519
  Transmission Date: 20111010
  Serious: Yes (Hospitalization)
  Sender: FDA-Public Use
  Company Number: 2011SP001674

PATIENT
  Sex: Male

DRUGS (2)
  1. LATUDA [Suspect]
     Indication: SCHIZOPHRENIA
     Dosage: 40 MG QD, ORAL
     Route: 048
     Dates: start: 20110101, end: 20110101
  2. ZYPREXA [Concomitant]

REACTIONS (3)
  - INSOMNIA [None]
  - PARANOIA [None]
  - AGITATION [None]
